FAERS Safety Report 11990951 (Version 3)
Quarter: 2016Q1

REPORT INFORMATION
  Report Type: Spontaneous
  Country: JP (occurrence: JP)
  Receive Date: 20160202
  Receipt Date: 20160217
  Transmission Date: 20160526
  Serious: Yes (Hospitalization, Other)
  Sender: FDA-Public Use
  Company Number: JP-ALLERGAN-1602321US

PATIENT
  Sex: Male

DRUGS (1)
  1. BOTOX [Suspect]
     Active Substance: ONABOTULINUMTOXINA
     Indication: MUSCLE SPASMS
     Dosage: 200 UNITS, SINGLE
     Route: 030
     Dates: start: 20160121, end: 20160121

REACTIONS (4)
  - Hypothermia [Not Recovered/Not Resolved]
  - Sputum retention [Unknown]
  - Cardiac failure [Unknown]
  - Malaise [Unknown]

NARRATIVE: CASE EVENT DATE: 20160126
